FAERS Safety Report 12408085 (Version 1)
Quarter: 2016Q2

REPORT INFORMATION
  Report Type: Spontaneous
  Country: AU (occurrence: AU)
  Receive Date: 20160526
  Receipt Date: 20160526
  Transmission Date: 20160815
  Serious: Yes (Death)
  Sender: FDA-Public Use
  Company Number: AU-IPCA LABORATORIES LIMITED-IPC201605-000471

PATIENT
  Age: 32 Year
  Sex: Female

DRUGS (7)
  1. VENLAFAXINE [Suspect]
     Active Substance: VENLAFAXINE HYDROCHLORIDE
  2. QUETIAPINE. [Suspect]
     Active Substance: QUETIAPINE
  3. OXYCODONE [Suspect]
     Active Substance: OXYCODONE
  4. LORATIDINE [Suspect]
     Active Substance: LORATADINE
  5. METOCLOPRAMIDE HYDROCHLORIDE. [Suspect]
     Active Substance: METOCLOPRAMIDE HYDROCHLORIDE
  6. LORAZEPAM. [Suspect]
     Active Substance: LORAZEPAM
  7. TOPIRAMATE. [Suspect]
     Active Substance: TOPIRAMATE

REACTIONS (5)
  - Completed suicide [Fatal]
  - Bezoar [Fatal]
  - Obstructive airways disorder [Fatal]
  - Toxicity to various agents [Fatal]
  - Intentional overdose [Fatal]
